FAERS Safety Report 24562981 (Version 1)
Quarter: 2024Q4

REPORT INFORMATION
  Report Type: Spontaneous
  Country: TR (occurrence: TR)
  Receive Date: 20241030
  Receipt Date: 20241030
  Transmission Date: 20250115
  Serious: Yes (Death, Hospitalization, Other)
  Sender: KVK-TECH
  Company Number: TR-KVK-TECH, INC-20241000151

PATIENT

DRUGS (1)
  1. LEFLUNOMIDE [Suspect]
     Active Substance: LEFLUNOMIDE
     Indication: Psoriatic arthropathy
     Dosage: 20 MILLIGRAM, QD
     Route: 048
     Dates: start: 2024

REACTIONS (2)
  - Drug reaction with eosinophilia and systemic symptoms [Fatal]
  - Hepatic failure [Fatal]
